FAERS Safety Report 11247790 (Version 3)
Quarter: 2015Q3

REPORT INFORMATION
  Report Type: Spontaneous
  Country: US (occurrence: US)
  Receive Date: 20150708
  Receipt Date: 20150827
  Transmission Date: 20151125
  Serious: Yes (Hospitalization, Other)
  Sender: FDA-Public Use
  Company Number: US-PFIZER INC-2015223654

PATIENT
  Age: 75 Year
  Sex: Female
  Weight: 72 kg

DRUGS (25)
  1. EFFEXOR XR [Suspect]
     Active Substance: VENLAFAXINE HYDROCHLORIDE
     Indication: PAIN
     Dosage: 75 MG, 2X/DAY
     Route: 048
  2. EXELON [Interacting]
     Active Substance: RIVASTIGMINE TARTRATE
     Dosage: 3 MG, 2X/DAY
     Dates: start: 2000
  3. OXYCODONE W/PARACETAMOL [Concomitant]
     Active Substance: ACETAMINOPHEN\OXYCODONE HYDROCHLORIDE
     Dosage: 5/325
  4. LORAZEPAM. [Concomitant]
     Active Substance: LORAZEPAM
     Dosage: 0.5 MG, UNK
  5. SAVELLA [Concomitant]
     Active Substance: MILNACIPRAN HYDROCHLORIDE
     Indication: FIBROMYALGIA
     Dosage: 12.5 MG, 2X/DAY
     Route: 048
     Dates: start: 20130603
  6. ARICEPT [Suspect]
     Active Substance: DONEPEZIL HYDROCHLORIDE
     Dosage: UNK
  7. EFFEXOR XR [Suspect]
     Active Substance: VENLAFAXINE HYDROCHLORIDE
     Indication: ANTIDEPRESSANT THERAPY
  8. OXYCODONE [Concomitant]
     Active Substance: OXYCODONE
     Indication: PAIN
     Dosage: UNK (325/5MG ONE TO TWO TABLETS EVERY SIX HOURS)
     Route: 048
     Dates: start: 2015, end: 2015
  9. POTASSIUM CHLORIDE. [Concomitant]
     Active Substance: POTASSIUM CHLORIDE
     Indication: MINERAL SUPPLEMENTATION
     Dosage: 10 MEQ, 1X/DAY
     Route: 048
  10. METHIMAZOLE. [Concomitant]
     Active Substance: METHIMAZOLE
     Indication: THYROID DISORDER
     Dosage: 5 MG, 1X/DAY
     Route: 048
  11. HYDROCHLOROTHIAZIDE. [Interacting]
     Active Substance: HYDROCHLOROTHIAZIDE
     Indication: BLOOD PRESSURE INCREASED
     Dosage: 25 MG, 1X/DAY
     Route: 048
     Dates: start: 2000
  12. MULTIVITAMINS [Concomitant]
     Active Substance: VITAMINS
     Dosage: UNK
  13. HYDROCODONE [Concomitant]
     Active Substance: HYDROCODONE
     Indication: PAIN
     Dosage: UNK (325/5MG ONE TO TWO TABLET EVERY SIX HOURS)
     Route: 048
     Dates: start: 2014, end: 2015
  14. DONEPEZIL. [Concomitant]
     Active Substance: DONEPEZIL
     Indication: AMNESIA
     Dosage: 10 MG, 1X/DAY
     Route: 048
     Dates: start: 2000
  15. DONEPEZIL. [Concomitant]
     Active Substance: DONEPEZIL
     Indication: TRANSIENT ISCHAEMIC ATTACK
  16. LYRICA [Interacting]
     Active Substance: PREGABALIN
     Indication: FIBROMYALGIA
     Dosage: 60 MG, 3X/DAY
  17. EFFEXOR XR [Suspect]
     Active Substance: VENLAFAXINE HYDROCHLORIDE
     Indication: FIBROMYALGIA
  18. RIVASTIGMINE. [Suspect]
     Active Substance: RIVASTIGMINE
     Indication: AMNESIA
     Dosage: 3 MG, DAILY
     Route: 048
     Dates: start: 2000
  19. LYRICA [Interacting]
     Active Substance: PREGABALIN
     Dosage: 50 MG, 3X/DAY
     Route: 048
  20. ENALAPRIL MALEATE. [Interacting]
     Active Substance: ENALAPRIL MALEATE
     Indication: BLOOD PRESSURE INCREASED
     Dosage: 10 MG, 1X/DAY
     Route: 048
     Dates: start: 2000
  21. TAPAZOLE [Interacting]
     Active Substance: METHIMAZOLE
     Dosage: 5 MG, UNK
     Dates: start: 2000
  22. BABY ASPIRIN [Interacting]
     Active Substance: ASPIRIN
     Dosage: 81 MG, 1X/DAY
  23. RIVASTIGMINE. [Suspect]
     Active Substance: RIVASTIGMINE
     Dosage: 3 MG, 2X/DAY
  24. VITAMIN B12 [Concomitant]
     Active Substance: CYANOCOBALAMIN
     Dosage: UNK
  25. HYDREA [Concomitant]
     Active Substance: HYDROXYUREA
     Indication: POLYCYTHAEMIA
     Dosage: 1000 MG, DAILY
     Route: 048
     Dates: start: 2000

REACTIONS (11)
  - Abdominal pain [Unknown]
  - Body height decreased [Unknown]
  - Pain [Not Recovered/Not Resolved]
  - Drug interaction [Unknown]
  - Joint dislocation [Recovered/Resolved]
  - Back pain [Unknown]
  - Abdominal pain [Unknown]
  - Transient ischaemic attack [Unknown]
  - Product use issue [Unknown]
  - Concussion [Recovered/Resolved]
  - Arthropod bite [Recovered/Resolved]

NARRATIVE: CASE EVENT DATE: 2014
